FAERS Safety Report 6048781-8 (Version None)
Quarter: 2009Q1

REPORT INFORMATION
  Report Type: 
  Country: None (occurrence: None)
  Receive Date: 20090123
  Receipt Date: 20090113
  Transmission Date: 20090719
  Serious: Yes (Hospitalization)
  Sender: FDA-Public Use
  Company Number: US-MERCK-0803USA03838

PATIENT
  Age: 73 Year
  Sex: Female

DRUGS (2)
  1. FOSAMAX [Suspect]
     Indication: OSTEOPOROSIS
     Route: 048
     Dates: end: 20060101
  2. FOSAMAX [Suspect]
     Route: 048
     Dates: start: 19991101

REACTIONS (20)
  - ABSCESS [None]
  - ARTHROPATHY [None]
  - BONE DEVELOPMENT ABNORMAL [None]
  - EXOSTOSIS [None]
  - FALL [None]
  - FISTULA DISCHARGE [None]
  - GINGIVAL BLEEDING [None]
  - GLUCOSE TOLERANCE IMPAIRED [None]
  - INFECTION [None]
  - INFLAMMATION [None]
  - IRON DEFICIENCY ANAEMIA [None]
  - LIP NEOPLASM [None]
  - MALAISE [None]
  - ORAL PAIN [None]
  - OVERDOSE [None]
  - PAIN IN JAW [None]
  - PYOGENIC GRANULOMA [None]
  - RESORPTION BONE INCREASED [None]
  - SWELLING [None]
  - TOOTH ABSCESS [None]
